FAERS Safety Report 5236540-5 (Version None)
Quarter: 2007Q1

REPORT INFORMATION
  Report Type: 
  Country: None (occurrence: None)
  Receive Date: 20070208
  Receipt Date: 20070125
  Transmission Date: 20070707
  Serious: Yes (Life-Threatening)
  Sender: FDA-Public Use
  Company Number: 30842

PATIENT
  Age: 76 Year
  Sex: Female

DRUGS (6)
  1. FLECAINIDE ACETATE [Suspect]
     Indication: TACHYARRHYTHMIA
     Dosage: 100 MG (50 MG, 2 IN 1 DAY(S))  ORAL
     Route: 048
     Dates: start: 19950101, end: 20070105
  2. FENOFIBRATE [Concomitant]
  3. LOXEN LP (NICARDIPINE) [Concomitant]
  4. CAPTOPRIL (CAPOTOPRIL) [Concomitant]
  5. BUMETANIDE [Concomitant]
  6. LANSOPRAZOLE [Concomitant]

REACTIONS (6)
  - CARDIAC PACEMAKER INSERTION [None]
  - HEAD INJURY [None]
  - INJURY [None]
  - MALAISE [None]
  - NO THERAPEUTIC RESPONSE [None]
  - NODAL ARRHYTHMIA [None]
